FAERS Safety Report 4434000-2 (Version None)
Quarter: 2004Q3

REPORT INFORMATION
  Report Type: 
  Country: None (occurrence: None)
  Receive Date: 20040825
  Receipt Date: 20040809
  Transmission Date: 20050211
  Serious: Yes (Hospitalization)
  Sender: FDA-Public Use
  Company Number: DSA_24810-2004

PATIENT
  Sex: Male

DRUGS (1)
  1. ATIVAN [Suspect]
     Dates: start: 20010517

REACTIONS (6)
  - ECONOMIC PROBLEM [None]
  - IMPRISONMENT [None]
  - MENTAL DISORDER [None]
  - PAIN [None]
  - PHYSICAL ASSAULT [None]
  - PSYCHOTIC DISORDER [None]
